FAERS Safety Report 5627956-3 (Version None)
Quarter: 2008Q1

REPORT INFORMATION
  Report Type: 
  Country: None (occurrence: None)
  Receive Date: 20080215
  Receipt Date: 20080212
  Transmission Date: 20080703
  Serious: Yes (Hospitalization, Other)
  Sender: FDA-Public Use
  Company Number: US-BRISTOL-MYERS SQUIBB COMPANY-14074074

PATIENT
  Age: 47 Year
  Sex: Male
  Weight: 63 kg

DRUGS (4)
  1. ERBITUX [Suspect]
     Indication: NEOPLASM MALIGNANT
     Dosage: THERAPY START DATE- 04JAN08;RECENT INFUSION-04FEB08;LOADIN DOSE-764MG
     Dates: start: 20080208, end: 20080208
  2. CISPLATIN [Suspect]
     Indication: NEOPLASM MALIGNANT
     Dosage: THERAPY START DATE- 04JAN08;RECENT INFUSION-04FEB08
     Dates: start: 20080208, end: 20080208
  3. RADIATION THERAPY [Concomitant]
     Indication: NEOPLASM MALIGNANT
     Dates: start: 20080101
  4. CHEMOTHERAPY [Concomitant]
     Indication: NEOPLASM MALIGNANT
     Dates: start: 20080101

REACTIONS (4)
  - ANOREXIA [None]
  - CONSTIPATION [None]
  - DYSPHAGIA [None]
  - NAUSEA [None]
